FAERS Safety Report 18375687 (Version 1)
Quarter: 2020Q4

REPORT INFORMATION
  Report Type: Spontaneous
  Country: US (occurrence: US)
  Receive Date: 20201009
  Receipt Date: 20201009
  Transmission Date: 20210114
  Serious: No
  Sender: FDA-Public Use
  Company Number: None

PATIENT
  Sex: Female
  Weight: 68.5 kg

DRUGS (10)
  1. CYCLOPHOSPHAMIDE. [Suspect]
     Active Substance: CYCLOPHOSPHAMIDE
     Indication: BREAST CANCER
     Route: 048
     Dates: start: 20200114, end: 20201009
  2. ALBUTEROL SULFATE HFA [Concomitant]
     Active Substance: ALBUTEROL SULFATE
  3. CYCLOPHOSPHAMIDE. [Suspect]
     Active Substance: CYCLOPHOSPHAMIDE
     Indication: BREAST CANCER
     Route: 048
     Dates: start: 20200114, end: 20201009
  4. ACETAMINOPHEN. [Concomitant]
     Active Substance: ACETAMINOPHEN
  5. ANASTROZOLE. [Concomitant]
     Active Substance: ANASTROZOLE
  6. GABAPENTIN. [Concomitant]
     Active Substance: GABAPENTIN
  7. VITAMIN D (CHOLECALCIFEROL) [Concomitant]
     Active Substance: CHOLECALCIFEROL
  8. LYRICA [Concomitant]
     Active Substance: PREGABALIN
  9. TRAMADOL HCL [Concomitant]
     Active Substance: TRAMADOL HYDROCHLORIDE
  10. FLUTICASONE PROPIONATE. [Concomitant]
     Active Substance: FLUTICASONE PROPIONATE

REACTIONS (1)
  - Disease progression [None]
